FAERS Safety Report 6326358-4 (Version None)
Quarter: 2009Q3

REPORT INFORMATION
  Report Type: 
  Country: None (occurrence: None)
  Receive Date: 20090821
  Receipt Date: 20090813
  Transmission Date: 20100115
  Serious: Yes (Other)
  Sender: FDA-Public Use
  Company Number: JPI-P-008279

PATIENT
  Age: 71 Year
  Sex: Female
  Weight: 56.6996 kg

DRUGS (2)
  1. XYREM [Suspect]
     Indication: FIBROMYALGIA
     Dosage: (UNKNOWN), ORAL
     Route: 048
     Dates: start: 20070101, end: 20090701
  2. LOVASTATIN [Concomitant]

REACTIONS (4)
  - CERVICAL MYELOPATHY [None]
  - PAIN IN EXTREMITY [None]
  - UNRESPONSIVE TO STIMULI [None]
  - UPPER AIRWAY RESISTANCE SYNDROME [None]
